FAERS Safety Report 9535066 (Version 2)
Quarter: 2013Q4

REPORT INFORMATION
  Report Type: Spontaneous
  Country: US (occurrence: US)
  Receive Date: 20130918
  Receipt Date: 20131028
  Transmission Date: 20140711
  Serious: Yes (Hospitalization)
  Sender: FDA-Public Use
  Company Number: US-PFIZER INC-2013264627

PATIENT
  Age: 14 Year
  Sex: Male

DRUGS (2)
  1. BENEFIX [Suspect]
     Indication: HAEMOPHILIA
     Dosage: 1800 IU, (AT A TIME) UNK
     Dates: start: 19970101
  2. BENEFIX [Suspect]
     Indication: FACTOR IX DEFICIENCY

REACTIONS (1)
  - Haemorrhage [Recovered/Resolved]
